FAERS Safety Report 4421994-4 (Version None)
Quarter: 2004Q3

REPORT INFORMATION
  Report Type: 
  Country: None (occurrence: None)
  Receive Date: 20040804
  Receipt Date: 20040714
  Transmission Date: 20050211
  Serious: Yes (Death)
  Sender: FDA-Public Use
  Company Number: USA040772599

PATIENT
  Age: 57 Year
  Sex: Male

DRUGS (6)
  1. ZYPREXA [Suspect]
     Indication: BIPOLAR DISORDER
     Dosage: 30 MG DAY
  2. ZYPREXA [Suspect]
     Indication: PSYCHOTIC DISORDER
     Dosage: 30 MG DAY
  3. KLONOPIN [Concomitant]
  4. ARTANE [Concomitant]
  5. PAXIL [Concomitant]
  6. TRAMADOL HCL [Concomitant]

REACTIONS (3)
  - CRYING [None]
  - DRUG TOXICITY [None]
  - DYSURIA [None]
